FAERS Safety Report 4656819-5 (Version None)
Quarter: 2005Q2

REPORT INFORMATION
  Report Type: 
  Country: None (occurrence: None)
  Receive Date: 20050505
  Receipt Date: 20050420
  Transmission Date: 20051028
  Serious: Yes (Hospitalization)
  Sender: FDA-Public Use
  Company Number: 2005SE02352

PATIENT
  Age: 32 Year
  Sex: Male

DRUGS (4)
  1. QUETIAPINE [Suspect]
     Indication: SCHIZOPHRENIA
     Dosage: 400 MG DAILY PO
     Route: 048
     Dates: start: 20040925, end: 20050307
  2. CLONAZEPAM [Concomitant]
  3. CARBAMAZEPINE [Concomitant]
  4. LITHIUM CARBONATE [Concomitant]

REACTIONS (2)
  - CONDITION AGGRAVATED [None]
  - SCHIZOPHRENIA [None]
